FAERS Safety Report 4683158-9 (Version None)
Quarter: 2005Q2

REPORT INFORMATION
  Report Type: 
  Country: None (occurrence: None)
  Receive Date: 20050602
  Receipt Date: 20050307
  Transmission Date: 20051028
  Serious: No
  Sender: FDA-Public Use
  Company Number: USA050392644

PATIENT
  Age: 17 Year
  Sex: Female
  Weight: 73 kg

DRUGS (8)
  1. CYMBALTA [Suspect]
     Indication: MOOD SWINGS
     Dosage: 30 MG DAY
     Dates: start: 20050304
  2. KARIVA [Concomitant]
  3. DEPAKOTE [Concomitant]
  4. SKELAXIN [Concomitant]
  5. VERAPAMIL [Concomitant]
  6. CYCLOBENZAPRINE HCL [Concomitant]
  7. FOLIC ACID [Concomitant]
  8. ACIPHEX [Concomitant]

REACTIONS (1)
  - METRORRHAGIA [None]
